FAERS Safety Report 4957419-X (Version None)
Quarter: 2006Q1

REPORT INFORMATION
  Report Type: 
  Country: None (occurrence: None)
  Receive Date: 20060327
  Receipt Date: 20060317
  Transmission Date: 20060701
  Serious: Yes (Death, Hospitalization)
  Sender: FDA-Public Use
  Company Number: 2006-03-1151

PATIENT
  Age: 42 Year
  Sex: Male

DRUGS (12)
  1. RINDERON-VG OINTMENT [Suspect]
     Indication: ADVERSE DRUG REACTION
     Dosage: TOP-DERM
     Route: 061
     Dates: start: 20050816, end: 20050820
  2. RINDERON-VG OINTMENT [Suspect]
     Indication: PROPHYLAXIS
     Dosage: TOP-DERM
     Route: 061
     Dates: start: 20050816, end: 20050820
  3. WINTERMIN [Suspect]
     Indication: HICCUPS
     Dosage: 10 MG ORAL
     Route: 048
     Dates: start: 20050820, end: 20050908
  4. OXYCONTIN [Concomitant]
  5. OXYCONTIN [Concomitant]
  6. OXYCONTIN [Concomitant]
  7. MAGNESIUM OXIDE [Concomitant]
  8. GASTROM [Concomitant]
  9. MORPHINE [Concomitant]
  10. NAUZELIN [Concomitant]
  11. PARAPLATIN [Concomitant]
  12. TAXOL [Concomitant]

REACTIONS (13)
  - ANXIETY DISORDER [None]
  - CARDIAC ARREST [None]
  - CONVULSION [None]
  - DIZZINESS [None]
  - HEADACHE [None]
  - HEPATIC FUNCTION ABNORMAL [None]
  - HICCUPS [None]
  - LUNG CANCER METASTATIC [None]
  - MALIGNANT NEOPLASM PROGRESSION [None]
  - METASTASES TO MENINGES [None]
  - NAUSEA [None]
  - RASH [None]
  - VOMITING [None]
